FAERS Safety Report 7712842-5 (Version None)
Quarter: 2011Q3

REPORT INFORMATION
  Report Type: 
  Country: None (occurrence: None)
  Receive Date: 20110826
  Receipt Date: 20110818
  Transmission Date: 20111222
  Serious: Yes (Hospitalization)
  Sender: FDA-Public Use
  Company Number: PHHY2011FR47599

PATIENT
  Sex: Male

DRUGS (11)
  1. NEXIUM [Suspect]
     Dosage: 2 DF, QD
     Dates: start: 20110201, end: 20110331
  2. NEXIUM [Suspect]
     Dosage: 1 DF, QD
  3. ASPIRIN [Concomitant]
     Dosage: 160 MG, QD
  4. ATORVASTATIN CALCIUM [Concomitant]
     Dosage: 10 MG, QD
  5. KETOPROFEN [Suspect]
     Dosage: 1 DF, QD
     Dates: end: 20110325
  6. TRILEPTAL [Suspect]
     Indication: EPILEPSY
     Dosage: 1 DF, BID
     Dates: start: 20110201
  7. FORLAX [Concomitant]
     Dosage: 2 DF, QD
  8. KETOPROFEN [Suspect]
     Indication: PAIN
     Dosage: 2 DF, BID
     Dates: start: 20110201, end: 20110313
  9. AMLODIPINE BESYLATE [Concomitant]
     Dosage: 10 MG, QD
  10. ZANTAC [Concomitant]
     Dosage: 150 MG, QD
  11. KETOPROFEN [Suspect]
     Dosage: 1 DF, BID
     Dates: end: 20110318

REACTIONS (6)
  - MEAN CELL VOLUME ABNORMAL [None]
  - HYPONATRAEMIA [None]
  - BLOOD ALDOSTERONE DECREASED [None]
  - HAEMATOCRIT DECREASED [None]
  - HYPERKALAEMIA [None]
  - HAEMOGLOBIN DECREASED [None]
